FAERS Safety Report 15280868 (Version 1)
Quarter: 2018Q3

REPORT INFORMATION
  Report Type: Spontaneous
  Country: US (occurrence: US)
  Receive Date: 20180731
  Receipt Date: 20180731
  Transmission Date: 20181010
  Serious: Yes (Other)
  Sender: FDA-Public Use
  Company Number: None

PATIENT
  Age: 16 Year
  Sex: Male

DRUGS (3)
  1. ALLEGRA [Concomitant]
     Active Substance: FEXOFENADINE HYDROCHLORIDE
  2. METAMUCIL FIBER CAPSULES [Concomitant]
  3. METHYLPHENIDATE EXTENDED RELEASE CAPSULES [Suspect]
     Active Substance: METHYLPHENIDATE
     Indication: PRODUCT USED FOR UNKNOWN INDICATION
     Dosage: ?          QUANTITY:30 CAPSULE(S);?
     Route: 048
     Dates: start: 20180724, end: 20180729

REACTIONS (5)
  - Product substitution issue [None]
  - Abnormal behaviour [None]
  - Hypersexuality [None]
  - Feeling abnormal [None]
  - Confusional state [None]

NARRATIVE: CASE EVENT DATE: 20180724
